FAERS Safety Report 5167735-7 (Version None)
Quarter: 2006Q4

REPORT INFORMATION
  Report Type: 
  Country: None (occurrence: None)
  Receive Date: 20061205
  Receipt Date: 20061205
  Transmission Date: 20070319
  Serious: Yes (Other)
  Sender: FDA-Public Use
  Company Number: None

PATIENT

DRUGS (1)
  1. SEROQUEL [Suspect]
     Dates: start: 20061106, end: 20061128

REACTIONS (2)
  - CHEST DISCOMFORT [None]
  - HEART RATE INCREASED [None]
